FAERS Safety Report 21275086 (Version 3)
Quarter: 2024Q3

REPORT INFORMATION
  Report Type: Report from Study
  Country: VN (occurrence: VN)
  Receive Date: 20220831
  Receipt Date: 20240710
  Transmission Date: 20241017
  Serious: No
  Sender: ROCHE
  Company Number: VN-ROCHE-3167312

PATIENT
  Age: 33 Year
  Sex: Male
  Weight: 68.0 kg

DRUGS (8)
  1. ALECTINIB [Suspect]
     Active Substance: ALECTINIB
     Indication: Non-small cell lung cancer metastatic
     Dosage: START DATE OF MOST RECENT DOSE OF STUDY DRUG PRIOR TO AE 26/APR/2022
     Route: 048
     Dates: start: 20220425, end: 20220426
  2. ZOMETA [Concomitant]
     Active Substance: ZOLEDRONIC ACID
     Dosage: FREQUENCY TEXT:PRN
     Route: 042
     Dates: start: 20220425, end: 20220425
  3. ZOMETA [Concomitant]
     Active Substance: ZOLEDRONIC ACID
     Dosage: FREQUENCY TEXT:PRN
     Route: 042
     Dates: start: 20220523, end: 20220523
  4. PHARBACOL [Concomitant]
     Indication: Analgesic therapy
     Route: 048
     Dates: start: 20220425, end: 20220522
  5. GABAPENTIN [Concomitant]
     Active Substance: GABAPENTIN
     Indication: Neuralgia
     Route: 048
     Dates: start: 20220425, end: 20220522
  6. SODIUM CHLORIDE [Concomitant]
     Active Substance: SODIUM CHLORIDE
     Dosage: FREQUENCY TEXT:PRN
     Route: 042
     Dates: start: 20220425, end: 20220425
  7. SODIUM CHLORIDE [Concomitant]
     Active Substance: SODIUM CHLORIDE
     Dosage: FREQUENCY TEXT:PRN
     Route: 042
     Dates: start: 20220523, end: 20220523
  8. TENOFOVIR DISOPROXIL FUMARATE [Concomitant]
     Active Substance: TENOFOVIR DISOPROXIL FUMARATE
     Dosage: INDICATION FOR MEDICAL HISTORY HEPATITIS
     Route: 048
     Dates: start: 20220425

REACTIONS (1)
  - Hepatic enzyme increased [Recovered/Resolved]

NARRATIVE: CASE EVENT DATE: 20220523
